FAERS Safety Report 19037205 (Version 1)
Quarter: 2021Q1

REPORT INFORMATION
  Report Type: Spontaneous
  Country: KR (occurrence: KR)
  Receive Date: 20210322
  Receipt Date: 20210322
  Transmission Date: 20210420
  Serious: Yes (Life-Threatening, Hospitalization, Other)
  Sender: FDA-Public Use
  Company Number: KR-LUPIN PHARMACEUTICALS INC.-2021-03472

PATIENT
  Age: 46 Year
  Sex: Male

DRUGS (4)
  1. LORAZEPAM. [Suspect]
     Active Substance: LORAZEPAM
     Indication: BIPOLAR II DISORDER
     Dosage: UNK (MASSIVE OVERDOSE)
     Route: 065
     Dates: start: 201810
  2. LITHIUM. [Suspect]
     Active Substance: LITHIUM
     Dosage: UNK MASSIVE OVERDOSE
     Route: 065
     Dates: start: 201810
  3. ARIPIPRAZOLE. [Suspect]
     Active Substance: ARIPIPRAZOLE
     Indication: BIPOLAR II DISORDER
     Dosage: UNK (MASSIVE OVERDOSE)
     Route: 065
     Dates: start: 201810
  4. LITHIUM. [Suspect]
     Active Substance: LITHIUM
     Indication: BIPOLAR II DISORDER
     Dosage: UNK (MASSIVE OVERDOSE)
     Route: 065
     Dates: start: 2008

REACTIONS (5)
  - Neuroleptic malignant syndrome [Recovering/Resolving]
  - Metabolic acidosis [Recovering/Resolving]
  - Acute kidney injury [Recovered/Resolved]
  - Haemodynamic instability [Recovering/Resolving]
  - Overdose [Unknown]

NARRATIVE: CASE EVENT DATE: 2018
